FAERS Safety Report 9933131 (Version 1)
Quarter: 2014Q1

REPORT INFORMATION
  Report Type: Report from Study
  Country: IN (occurrence: IN)
  Receive Date: 20140228
  Receipt Date: 20140228
  Transmission Date: 20141002
  Serious: Yes (Death)
  Sender: FDA-Public Use
  Company Number: IN-SA-2014SA024690

PATIENT
  Sex: 0

DRUGS (3)
  1. EPIRUBICIN [Suspect]
     Indication: NEOPLASM MALIGNANT
     Dosage: OON DAY 1
     Route: 042
  2. OXALIPLATIN [Suspect]
     Indication: NEOPLASM MALIGNANT
     Dosage: ON DAY 1
     Route: 065
  3. CAPECITABINE [Suspect]
     Indication: NEOPLASM MALIGNANT
     Dosage: ON DAYS 1-21; EVERY 21 DAYS
     Route: 065

REACTIONS (1)
  - Death [Fatal]
